FAERS Safety Report 13006660 (Version 3)
Quarter: 2017Q3

REPORT INFORMATION
  Report Type: Spontaneous
  Country: US (occurrence: US)
  Receive Date: 20161207
  Receipt Date: 20170817
  Transmission Date: 20171127
  Serious: No
  Sender: FDA-Public Use
  Company Number: GXBR2016US002302

PATIENT
  Sex: Female
  Weight: 76.64 kg

DRUGS (7)
  1. TACROLIMUS. [Suspect]
     Active Substance: TACROLIMUS
     Indication: RASH
     Dosage: UNK DF, UNK
     Route: 065
     Dates: start: 200511, end: 2016
  2. TACLONEX [Suspect]
     Active Substance: BETAMETHASONE DIPROPIONATE\CALCIPOTRIENE\CALCIPOTRIENE HYDRATE
     Indication: RASH
     Dosage: UNK DF, UNK
     Route: 061
     Dates: start: 201509, end: 2016
  3. CLOBETASOL [Concomitant]
     Active Substance: CLOBETASOL
     Indication: PRODUCT USED FOR UNKNOWN INDICATION
     Dosage: UNK DF, UNK
     Route: 061
     Dates: start: 201509, end: 2016
  4. CLOTRIMAZOL [Concomitant]
     Active Substance: CLOTRIMAZOLE
     Indication: PRODUCT USED FOR UNKNOWN INDICATION
     Dosage: UNK DF, UNK
     Route: 061
     Dates: start: 201511
  5. NYSTAT [Concomitant]
     Active Substance: NYSTATIN
     Indication: PRODUCT USED FOR UNKNOWN INDICATION
     Dosage: UNK DF, UNK
     Route: 061
     Dates: start: 201508
  6. OXISTAT [Suspect]
     Active Substance: OXICONAZOLE NITRATE
     Indication: RASH
     Dosage: UNK DF, UNK
     Route: 061
     Dates: start: 201510, end: 201609
  7. KETOCONAZOLE. [Concomitant]
     Active Substance: KETOCONAZOLE
     Indication: PRODUCT USED FOR UNKNOWN INDICATION
     Dosage: UNK DF, UNK
     Route: 061
     Dates: start: 201510

REACTIONS (9)
  - Skin sensitisation [Not Recovered/Not Resolved]
  - Erythema [Not Recovered/Not Resolved]
  - Pain [Not Recovered/Not Resolved]
  - Rash [Not Recovered/Not Resolved]
  - Skin exfoliation [Not Recovered/Not Resolved]
  - Skin burning sensation [Not Recovered/Not Resolved]
  - Pruritus [Not Recovered/Not Resolved]
  - Tinea pedis [Not Recovered/Not Resolved]
  - Drug ineffective [Not Recovered/Not Resolved]
